FAERS Safety Report 5443372-1 (Version None)
Quarter: 2007Q3

REPORT INFORMATION
  Report Type: 
  Country: None (occurrence: None)
  Receive Date: 20070905
  Receipt Date: 20070830
  Transmission Date: 20080115
  Serious: Yes (Other)
  Sender: FDA-Public Use
  Company Number: A0678256A

PATIENT
  Age: 30 Year
  Sex: Female
  Weight: 44 kg

DRUGS (2)
  1. STELAZINE [Suspect]
     Indication: SCHIZOPHRENIA
     Dosage: 5MG PER DAY
     Route: 048
     Dates: start: 20060801
  2. LEVONORGESTREL + ETHINYL ESTRADIOL [Concomitant]
     Dates: start: 20020101

REACTIONS (6)
  - BLEPHAROSPASM [None]
  - DIZZINESS [None]
  - HALLUCINATION [None]
  - PRESYNCOPE [None]
  - SOMNOLENCE [None]
  - TREMOR [None]
